FAERS Safety Report 12841296 (Version 2)
Quarter: 2016Q4

REPORT INFORMATION
  Report Type: Report from Study
  Country: GB (occurrence: GB)
  Receive Date: 20161012
  Receipt Date: 20161103
  Transmission Date: 20170207
  Serious: Yes (Other)
  Sender: FDA-Public Use
  Company Number: GB-JNJFOC-20160924815

PATIENT
  Sex: Female

DRUGS (1)
  1. SIMPONI [Suspect]
     Active Substance: GOLIMUMAB
     Indication: PRODUCT USED FOR UNKNOWN INDICATION
     Route: 058

REACTIONS (7)
  - Pain [Unknown]
  - Laryngitis [Unknown]
  - Urinary tract infection [Recovered/Resolved]
  - Tonsillitis [Unknown]
  - Arthralgia [Unknown]
  - Mouth ulceration [Unknown]
  - Infection [Unknown]
